FAERS Safety Report 20724158 (Version 2)
Quarter: 2022Q2

REPORT INFORMATION
  Report Type: Spontaneous
  Country: JP (occurrence: JP)
  Receive Date: 20220419
  Receipt Date: 20220504
  Transmission Date: 20220721
  Serious: Yes (Death, Other)
  Sender: FDA-Public Use
  Company Number: JP-OTSUKA-2022_023357

PATIENT
  Age: 59 Year
  Sex: Male

DRUGS (2)
  1. ICLUSIG [Suspect]
     Active Substance: PONATINIB
     Indication: Chronic myeloid leukaemia transformation
     Dosage: 30 MILLIGRAM, QD
     Route: 048
     Dates: start: 20210101, end: 20211216
  2. ICLUSIG [Suspect]
     Active Substance: PONATINIB
     Dosage: 45 MILLIGRAM
     Route: 065

REACTIONS (2)
  - Chronic myeloid leukaemia transformation [Fatal]
  - Hypertension [Recovering/Resolving]

NARRATIVE: CASE EVENT DATE: 20210105
